FAERS Safety Report 18522657 (Version 1)
Quarter: 2020Q4

REPORT INFORMATION
  Report Type: Spontaneous
  Country: CN (occurrence: CN)
  Receive Date: 20201119
  Receipt Date: 20201119
  Transmission Date: 20210114
  Serious: Yes (Other)
  Sender: FDA-Public Use
  Company Number: CN-ASTRAZENECA-2020SF51674

PATIENT
  Age: 18655 Day
  Sex: Female
  Weight: 60 kg

DRUGS (5)
  1. TERBUTALINE SULFATE. [Suspect]
     Active Substance: TERBUTALINE SULFATE
     Indication: RESPIRATORY THERAPY
     Route: 055
     Dates: start: 20201106, end: 20201106
  2. LATAMOXEF SODIUM [Concomitant]
     Indication: CHOLELITHIASIS
     Route: 041
     Dates: start: 20201028, end: 20201106
  3. SODIUM CHLORIDE. [Concomitant]
     Active Substance: SODIUM CHLORIDE
     Indication: MEDICATION DILUTION
     Route: 041
     Dates: start: 20201028, end: 20201106
  4. LATAMOXEF SODIUM [Concomitant]
     Indication: CHOLECYSTITIS
     Route: 041
     Dates: start: 20201028, end: 20201106
  5. BUDESONIDE. [Suspect]
     Active Substance: BUDESONIDE
     Indication: RESPIRATORY THERAPY
     Route: 055
     Dates: start: 20201106, end: 20201106

REACTIONS (1)
  - Convulsions local [Recovered/Resolved]

NARRATIVE: CASE EVENT DATE: 20201106
